FAERS Safety Report 5410131-5 (Version None)
Quarter: 2007Q3

REPORT INFORMATION
  Report Type: 
  Country: None (occurrence: None)
  Receive Date: 20070809
  Receipt Date: 20070730
  Transmission Date: 20080115
  Serious: Yes (Other)
  Sender: FDA-Public Use
  Company Number: US-SHR-US-2007-003916

PATIENT
  Age: 54 Year
  Sex: Female
  Weight: 94.331 kg

DRUGS (14)
  1. BETASERON [Suspect]
     Indication: RELAPSING-REMITTING MULTIPLE SCLEROSIS
     Dosage: 8 MIU, EVERY 2D
     Route: 058
     Dates: start: 20050602
  2. ZONEGRAN [Concomitant]
     Dosage: 100 MG, 2X/DAY
  3. WELLBUTRIN - SLOW RELEASE [Concomitant]
     Dosage: 200 MG, AM
  4. WELLBUTRIN - SLOW RELEASE [Concomitant]
     Dosage: 100 MG, PM
  5. ZOLOFT [Concomitant]
     Dosage: 100 MG, AM + PM
  6. PROVIGIL [Concomitant]
     Dosage: 200 MG, 2X/DAY
  7. BACLOFEN [Concomitant]
     Dosage: 40 MG, 3X/DAY
  8. COENZYME W/B COMPLEX [Concomitant]
     Dosage: UNK, 2X/DAY
  9. ALIVE MULTIVIT/MINERAL [Concomitant]
     Dosage: UNK, 3X/DAY
  10. PRIMADOPHILUS BIFIDUS [Concomitant]
  11. ASCORBIC ACID [Concomitant]
     Dosage: 1000 MG, 3X/DAY
  12. VITAMIN CAP [Concomitant]
  13. DESYREL [Concomitant]
     Dosage: UNK, UNK
  14. ZANAFLEX [Concomitant]
     Dosage: 2 MG/D, UNK

REACTIONS (7)
  - BALANCE DISORDER [None]
  - COGNITIVE DISORDER [None]
  - DILATATION VENTRICULAR [None]
  - DISTURBANCE IN ATTENTION [None]
  - MUSCULOSKELETAL CHEST PAIN [None]
  - NECK PAIN [None]
  - PAIN [None]
